FAERS Safety Report 5107839-8 (Version None)
Quarter: 2006Q3

REPORT INFORMATION
  Report Type: 
  Country: None (occurrence: None)
  Receive Date: 20060919
  Receipt Date: 20060908
  Transmission Date: 20061208
  Serious: Yes (Other)
  Sender: FDA-Public Use
  Company Number: US-JNJFOC-20060902551

PATIENT
  Sex: Female

DRUGS (1)
  1. PREZISTA [Suspect]
     Indication: HIV INFECTION
     Dosage: PATIENT HAS RECEIVED DARUNAVIR FOR APPROXIMATELY 1 MONTH
     Route: 048

REACTIONS (1)
  - CEREBROVASCULAR ACCIDENT [None]
